FAERS Safety Report 5672889-X (Version None)
Quarter: 2008Q1

REPORT INFORMATION
  Report Type: 
  Country: None (occurrence: None)
  Receive Date: 20080319
  Receipt Date: 20071029
  Transmission Date: 20080703
  Serious: No
  Sender: FDA-Public Use
  Company Number: US-ASTRAZENECA-2007UW25132

PATIENT
  Age: 93 Year
  Sex: Female
  Weight: 54 kg

DRUGS (6)
  1. SYMBICORT [Suspect]
     Indication: BRONCHITIS
     Dosage: 80/4.5 UG BID
     Route: 055
     Dates: start: 20071018
  2. AVAPRO [Concomitant]
  3. NORVASC [Concomitant]
  4. OMEPRAZOLE [Concomitant]
  5. LORAZEPAM [Concomitant]
  6. SYNTHROID [Concomitant]

REACTIONS (3)
  - GLOSSODYNIA [None]
  - TONGUE DISORDER [None]
  - TOOTH DISORDER [None]
